FAERS Safety Report 5888702-1 (Version None)
Quarter: 2008Q3

REPORT INFORMATION
  Report Type: 
  Country: None (occurrence: None)
  Receive Date: 20080917
  Receipt Date: 20080912
  Transmission Date: 20090109
  Serious: Yes (Death, Hospitalization)
  Sender: FDA-Public Use
  Company Number: 2008SP009214

PATIENT
  Age: 74 Year
  Sex: Male
  Weight: 69 kg

DRUGS (13)
  1. TEMODAL [Suspect]
     Indication: CENTRAL NERVOUS SYSTEM LYMPHOMA
     Dosage: 270 MG; QD; PO; PO
     Route: 048
     Dates: start: 20070718, end: 20070722
  2. TEMODAL [Suspect]
     Indication: CENTRAL NERVOUS SYSTEM LYMPHOMA
     Dosage: 270 MG; QD; PO; PO
     Route: 048
     Dates: start: 20070821, end: 20070825
  3. TEMODAL [Suspect]
     Indication: CENTRAL NERVOUS SYSTEM LYMPHOMA
     Dosage: 270 MG; QD; PO; PO
     Route: 048
     Dates: start: 20070918, end: 20070922
  4. METHOTREXATE [Suspect]
     Indication: CENTRAL NERVOUS SYSTEM LYMPHOMA
     Dosage: 6.3 GM; IV
     Route: 042
     Dates: start: 20070718, end: 20070718
  5. METHOTREXATE [Suspect]
     Indication: CENTRAL NERVOUS SYSTEM LYMPHOMA
     Dosage: 6.3 GM; IV
     Route: 042
     Dates: start: 20070806, end: 20070806
  6. METHOTREXATE [Suspect]
     Indication: CENTRAL NERVOUS SYSTEM LYMPHOMA
     Dosage: 6.3 GM; IV
     Route: 042
     Dates: start: 20070821, end: 20070821
  7. METHOTREXATE [Suspect]
     Indication: CENTRAL NERVOUS SYSTEM LYMPHOMA
     Dosage: 6.3 GM; IV
     Route: 042
     Dates: start: 20070904, end: 20070904
  8. METHOTREXATE [Suspect]
     Indication: CENTRAL NERVOUS SYSTEM LYMPHOMA
     Dosage: 6.3 GM; IV
     Route: 042
     Dates: start: 20070918, end: 20070918
  9. METHOTREXATE [Suspect]
     Indication: CENTRAL NERVOUS SYSTEM LYMPHOMA
     Dosage: 6.3 GM; IV
     Route: 042
     Dates: start: 20071003, end: 20071003
  10. PROCARBAZINE [Concomitant]
  11. LOMUSTINE [Concomitant]
  12. VINCRISTINE [Concomitant]
  13. ZOPHREN [Concomitant]

REACTIONS (6)
  - CARDIAC DISORDER [None]
  - HYPERTHERMIA [None]
  - LUNG DISORDER [None]
  - PULMONARY CONGESTION [None]
  - RESPIRATORY DISTRESS [None]
  - RESPIRATORY FAILURE [None]
